FAERS Safety Report 10382374 (Version 4)
Quarter: 2015Q2

REPORT INFORMATION
  Report Type: Spontaneous
  Country: US (occurrence: US)
  Receive Date: 20140813
  Receipt Date: 20150515
  Transmission Date: 20150821
  Serious: Yes (Death, Hospitalization, Other)
  Sender: FDA-Public Use
  Company Number: US-009507513-1408USA007563

PATIENT
  Sex: Male
  Weight: 98.9 kg

DRUGS (5)
  1. GLIMEPIRIDE. [Concomitant]
     Active Substance: GLIMEPIRIDE
     Indication: TYPE 2 DIABETES MELLITUS
     Dosage: 2-4 MG, QD
  2. JANUVIA [Suspect]
     Active Substance: SITAGLIPTIN PHOSPHATE
     Indication: TYPE 2 DIABETES MELLITUS
     Dosage: 100 MG, QD
     Route: 048
     Dates: start: 20110816, end: 20111216
  3. VICTOZA [Suspect]
     Active Substance: LIRAGLUTIDE
     Dosage: 18 MG, QD
     Dates: start: 20111216, end: 20120514
  4. METFORMIN [Concomitant]
     Active Substance: METFORMIN HYDROCHLORIDE
     Indication: TYPE 2 DIABETES MELLITUS
     Dosage: 1000 MG, BID
  5. ACTOS [Concomitant]
     Active Substance: PIOGLITAZONE HYDROCHLORIDE
     Indication: TYPE 2 DIABETES MELLITUS
     Dosage: 45 MG, QD

REACTIONS (37)
  - Metastases to liver [Unknown]
  - Metastatic neoplasm [Unknown]
  - Intestinal obstruction [Unknown]
  - Small intestinal obstruction [Unknown]
  - Pelvic abscess [Unknown]
  - Joint surgery [Unknown]
  - Erythema [Unknown]
  - Constipation [Unknown]
  - Pancreatic carcinoma metastatic [Fatal]
  - Metastasis [Unknown]
  - Gallbladder disorder [Unknown]
  - Intestinal perforation [Unknown]
  - Diabetes mellitus inadequate control [Unknown]
  - Pyrexia [Unknown]
  - Hypertension [Unknown]
  - Hallucination [Unknown]
  - Hypercholesterolaemia [Unknown]
  - Restless legs syndrome [Unknown]
  - Drug ineffective [Unknown]
  - Explorative laparotomy [Unknown]
  - Ileostomy [Unknown]
  - Metastases to peritoneum [Unknown]
  - Pleural fibrosis [Unknown]
  - Coronary artery disease [Unknown]
  - Oedema [Unknown]
  - Intrathecal pump insertion [Unknown]
  - Abdominal abscess [Unknown]
  - Delirium [Unknown]
  - Soft tissue disorder [Unknown]
  - Hydronephrosis [Unknown]
  - Cystitis [Unknown]
  - Hypogonadism [Unknown]
  - Anaemia of chronic disease [Unknown]
  - Metastases to pleura [Unknown]
  - Inguinal hernia repair [Unknown]
  - Renal cyst [Unknown]
  - Diverticulum intestinal [Unknown]

NARRATIVE: CASE EVENT DATE: 20110927
